FAERS Safety Report 4540039-9 (Version None)
Quarter: 2004Q4

REPORT INFORMATION
  Report Type: 
  Country: None (occurrence: None)
  Receive Date: 20041223
  Receipt Date: 20041215
  Transmission Date: 20050328
  Serious: Yes (Death)
  Sender: FDA-Public Use
  Company Number: 2004112715

PATIENT
  Age: 78 Year
  Sex: Male
  Weight: 86.1834 kg

DRUGS (2)
  1. ZANTAC 75 [Suspect]
     Indication: GASTROOESOPHAGEAL REFLUX DISEASE
     Dosage: 1 TABLET 2 TIMES A DAY, ORAL
     Route: 048
     Dates: end: 20030325
  2. WARFARIN SODIUM [Concomitant]

REACTIONS (2)
  - PANCREATITIS [None]
  - SEPSIS [None]
